FAERS Safety Report 24694970 (Version 1)
Quarter: 2024Q4

REPORT INFORMATION
  Report Type: Spontaneous
  Country: US (occurrence: None)
  Receive Date: 20241203
  Receipt Date: 20241203
  Transmission Date: 20250115
  Serious: Yes (Hospitalization)
  Sender: Public
  Company Number: None

PATIENT
  Sex: Female

DRUGS (1)
  1. GAMMAGARD LIQUID [Suspect]
     Active Substance: HUMAN IMMUNOGLOBULIN G
     Indication: Hypogammaglobulinaemia
     Dosage: OTHER STRENGTH : 30GM/300M;?OTHER FREQUENCY : DAILYFOR2DAYSEVERY3WKS;?DOSE OR AMOUNT INFUSE 30GM (30
     Route: 042

REACTIONS (2)
  - Urinary tract infection [None]
  - Road traffic accident [None]
